FAERS Safety Report 7840665-5 (Version None)
Quarter: 2011Q4

REPORT INFORMATION
  Report Type: 
  Country: None (occurrence: None)
  Receive Date: 20111025
  Receipt Date: 20111019
  Transmission Date: 20120403
  Serious: Yes (Hospitalization)
  Sender: FDA-Public Use
  Company Number: US-BRISTOL-MYERS SQUIBB COMPANY-13987060

PATIENT
  Age: 59 Year
  Sex: Male
  Weight: 55 kg

DRUGS (1)
  1. CISPLATIN [Suspect]
     Indication: LARYNGEAL CANCER
     Dosage: 100MG/M2
     Route: 042
     Dates: start: 20071010, end: 20071010

REACTIONS (8)
  - DEHYDRATION [None]
  - SEPSIS [None]
  - HYPOKALAEMIA [None]
  - MUCOSAL INFLAMMATION [None]
  - RECALL PHENOMENON [None]
  - DYSPHAGIA [None]
  - SYNCOPE [None]
  - PNEUMONIA [None]
